FAERS Safety Report 4495859-6 (Version None)
Quarter: 2004Q4

REPORT INFORMATION
  Report Type: 
  Country: None (occurrence: None)
  Receive Date: 20041103
  Receipt Date: 20041018
  Transmission Date: 20050328
  Serious: Yes (Hospitalization)
  Sender: FDA-Public Use
  Company Number: 209999

PATIENT
  Age: 58 Year
  Sex: Female

DRUGS (2)
  1. BEVACIZUMAB (BEVACIZUMAB ) PWDR + SOLVENT SOLN, 100 MG [Suspect]
     Indication: BREAST CANCER METASTATIC
     Dosage: 10 MG/KG, Q2W, INTRAVENOUS
     Route: 042
     Dates: start: 20040421
  2. PACLITAXEL [Suspect]
     Indication: BREAST CANCER METASTATIC
     Dosage: 90 MG/M2, 1/WEEK, INTRAVENOUS
     Route: 042
     Dates: start: 20040421

REACTIONS (5)
  - BODY TEMPERATURE INCREASED [None]
  - INFECTION [None]
  - LOOSE STOOLS [None]
  - PERIRECTAL ABSCESS [None]
  - STOOLS WATERY [None]
